FAERS Safety Report 19182309 (Version 2)
Quarter: 2021Q2

REPORT INFORMATION
  Report Type: Report from Study
  Country: None (occurrence: CO)
  Receive Date: 20210427
  Receipt Date: 20210526
  Transmission Date: 20210717
  Serious: Yes (Other)
  Sender: FDA-Public Use
  Company Number: CO-ABBVIE-21K-036-3874774-00

PATIENT
  Age: 62 Year
  Sex: Female
  Weight: 64 kg

DRUGS (8)
  1. HUMIRA [Suspect]
     Active Substance: ADALIMUMAB
     Indication: COLITIS ULCERATIVE
     Route: 058
  2. COVID?19 VACCINE NOS. [Suspect]
     Active Substance: COVID-19 VACCINE NOS
     Indication: COVID-19 IMMUNISATION
     Dosage: 1ST DOSE
     Route: 030
     Dates: start: 2021, end: 2021
  3. CALCIUM [Suspect]
     Active Substance: CALCIUM
     Indication: MUSCULOSKELETAL DISCOMFORT
     Route: 048
  4. HUMIRA [Suspect]
     Active Substance: ADALIMUMAB
     Indication: COLITIS ULCERATIVE
     Route: 058
     Dates: start: 20170119
  5. LATANOPROST. [Concomitant]
     Active Substance: LATANOPROST
     Indication: EYE DISORDER
  6. LATANOPROST. [Concomitant]
     Active Substance: LATANOPROST
     Indication: GLAUCOMA
     Dosage: 1 AT NIGHT
     Route: 047
  7. COVID?19 VACCINE NOS. [Suspect]
     Active Substance: COVID-19 VACCINE NOS
     Dosage: 2ND DOSE
     Route: 030
     Dates: start: 20210421, end: 20210421
  8. SULFASALAZINE. [Suspect]
     Active Substance: SULFASALAZINE
     Indication: COLITIS ULCERATIVE
     Dosage: EVERY 12 HOURS
     Route: 048

REACTIONS (21)
  - Glaucoma [Recovering/Resolving]
  - Abdominal discomfort [Recovering/Resolving]
  - Abdominal pain [Recovering/Resolving]
  - Musculoskeletal discomfort [Recovering/Resolving]
  - Dry mouth [Recovering/Resolving]
  - Stress [Recovering/Resolving]
  - Mobility decreased [Recovering/Resolving]
  - Thirst [Recovering/Resolving]
  - Eructation [Recovering/Resolving]
  - Visual impairment [Recovering/Resolving]
  - Gait disturbance [Recovering/Resolving]
  - Osteoarthritis [Recovering/Resolving]
  - Gastrooesophageal reflux disease [Recovering/Resolving]
  - Limb discomfort [Recovering/Resolving]
  - Arthropathy [Recovering/Resolving]
  - Pain in extremity [Recovering/Resolving]
  - Feeling abnormal [Unknown]
  - Asthenia [Recovering/Resolving]
  - Osteoporosis [Recovering/Resolving]
  - Hyperhidrosis [Recovering/Resolving]
  - Dysstasia [Recovering/Resolving]

NARRATIVE: CASE EVENT DATE: 2020
